FAERS Safety Report 15103498 (Version 3)
Quarter: 2018Q4

REPORT INFORMATION
  Report Type: Spontaneous
  Country: IE (occurrence: IE)
  Receive Date: 20180703
  Receipt Date: 20181205
  Transmission Date: 20190204
  Serious: Yes (Hospitalization, Disabling, Other)
  Sender: FDA-Public Use
  Company Number: IE-OTSUKA-2018_017550

PATIENT
  Age: 65 Year
  Sex: Male
  Weight: 76 kg

DRUGS (2)
  1. ZISMIRT 30MG FILM COATED TABLETS [Suspect]
     Active Substance: MIRTAZAPINE
     Indication: DEPRESSION
     Dosage: 30 MG, QD
     Route: 048
     Dates: start: 2009, end: 201801
  2. ABILIFY [Suspect]
     Active Substance: ARIPIPRAZOLE
     Indication: DEPRESSION
     Dosage: 10 G, ONCE
     Route: 048
     Dates: start: 201212, end: 201306

REACTIONS (16)
  - Weight increased [Unknown]
  - Peripheral swelling [Recovered/Resolved]
  - Overdose [Unknown]
  - Skin laxity [Unknown]
  - Osteoarthritis [Recovered/Resolved]
  - Type 2 diabetes mellitus [Recovered/Resolved]
  - Dizziness [Recovered/Resolved]
  - Sleep apnoea syndrome [Unknown]
  - Abdominal distension [Unknown]
  - Back pain [Recovered/Resolved]
  - Hypertension [Recovered/Resolved]
  - Obesity [Recovered/Resolved]
  - Dyspnoea [Unknown]
  - Weight decreased [Recovered/Resolved]
  - Decreased appetite [Unknown]
  - Product use in unapproved indication [Unknown]

NARRATIVE: CASE EVENT DATE: 2009
